FAERS Safety Report 24741244 (Version 5)
Quarter: 2025Q2

REPORT INFORMATION
  Report Type: Report from Study
  Country: GB (occurrence: GB)
  Receive Date: 20241217
  Receipt Date: 20250409
  Transmission Date: 20250717
  Serious: Yes (Disabling, Other)
  Sender: CELLTRION
  Company Number: GB-CELLTRION INC.-2024GB027070

PATIENT

DRUGS (3)
  1. INFLIXIMAB-DYYB [Suspect]
     Active Substance: INFLIXIMAB-DYYB
     Indication: Colitis ulcerative
     Dosage: FORTNIGHTLY/120 MG EOW
     Route: 058
     Dates: start: 20241017
  2. INFLIXIMAB-DYYB [Suspect]
     Active Substance: INFLIXIMAB-DYYB
     Indication: Crohn^s disease
  3. METHOTREXATE SODIUM [Suspect]
     Active Substance: METHOTREXATE SODIUM
     Indication: Product used for unknown indication

REACTIONS (9)
  - Blister [Not Recovered/Not Resolved]
  - Condition aggravated [Recovered/Resolved]
  - Skin exfoliation [Not Recovered/Not Resolved]
  - Back pain [Not Recovered/Not Resolved]
  - Rash [Not Recovered/Not Resolved]
  - Fatigue [Unknown]
  - Adverse drug reaction [Unknown]
  - Therapeutic response delayed [Not Recovered/Not Resolved]
  - Drug ineffective [Unknown]

NARRATIVE: CASE EVENT DATE: 20241025
